FAERS Safety Report 12172142 (Version 1)
Quarter: 2016Q1

REPORT INFORMATION
  Report Type: Spontaneous
  Country: CA (occurrence: CA)
  Receive Date: 20160311
  Receipt Date: 20160311
  Transmission Date: 20160526
  Serious: Yes (Hospitalization)
  Sender: FDA-Public Use
  Company Number: CA-ACTELION-A-US2016-132489

PATIENT
  Age: 56 Year
  Sex: Female

DRUGS (8)
  1. OPSUMIT [Suspect]
     Active Substance: MACITENTAN
     Indication: PULMONARY HYPERTENSION
     Dosage: 10 MG, QD
     Route: 048
  2. ARTHROTEC [Concomitant]
     Active Substance: DICLOFENAC SODIUM\MISOPROSTOL
  3. FERROUS GLUCONATE [Concomitant]
     Active Substance: FERROUS GLUCONATE
  4. LYRICA [Concomitant]
     Active Substance: PREGABALIN
  5. ZOLOFT [Concomitant]
     Active Substance: SERTRALINE HYDROCHLORIDE
  6. LOSEC [Concomitant]
     Active Substance: OMEPRAZOLE
  7. CLONAZEPAM. [Concomitant]
     Active Substance: CLONAZEPAM
  8. MELATONIN [Concomitant]
     Active Substance: MELATONIN

REACTIONS (2)
  - Fluid retention [Unknown]
  - Pneumonia [Unknown]
